FAERS Safety Report 5632698-4 (Version None)
Quarter: 2008Q1

REPORT INFORMATION
  Report Type: 
  Country: None (occurrence: None)
  Receive Date: 20080220
  Receipt Date: 20080208
  Transmission Date: 20080703
  Serious: Yes (Other)
  Sender: FDA-Public Use
  Company Number: US-PFIZER INC-2008014293

PATIENT
  Sex: Male
  Weight: 72.727 kg

DRUGS (2)
  1. CHANTIX [Suspect]
     Indication: SMOKING CESSATION THERAPY
     Dates: start: 20080130, end: 20080207
  2. BUPRENORPHINE HYDROCHLORIDE/NALOXONE HYDROCHLORIDE [Concomitant]

REACTIONS (9)
  - ANXIETY [None]
  - ASTHENIA [None]
  - DIZZINESS [None]
  - INSOMNIA [None]
  - LIBIDO DECREASED [None]
  - NAUSEA [None]
  - T-LYMPHOCYTE COUNT DECREASED [None]
  - VIRAL LOAD INCREASED [None]
  - WEIGHT DECREASED [None]
